FAERS Safety Report 9122633 (Version 2)
Quarter: 2013Q1

REPORT INFORMATION
  Report Type: Spontaneous
  Country: JP (occurrence: JP)
  Receive Date: 20130227
  Receipt Date: 20130307
  Transmission Date: 20140127
  Serious: Yes (Life-Threatening)
  Sender: FDA-Public Use
  Company Number: JP-COVIDIEN/TYCO HEALTHCARE/MALLINCKRODT-T201300885

PATIENT
  Age: 82 Year
  Sex: Male
  Weight: 49.6 kg

DRUGS (2)
  1. OPTIRAY [Suspect]
     Indication: COMPUTERISED TOMOGRAM
     Dosage: 100 ML, SINGLE
     Route: 042
     Dates: start: 20130218, end: 20130218
  2. BROTIZOLAM [Concomitant]
     Indication: INSOMNIA
     Dosage: 0.25 MG, QD
     Route: 048

REACTIONS (1)
  - Anaphylactic shock [Recovered/Resolved]
